FAERS Safety Report 7537784-X (Version None)
Quarter: 2011Q2

REPORT INFORMATION
  Report Type: 
  Country: None (occurrence: None)
  Receive Date: 20110603
  Receipt Date: 20110525
  Transmission Date: 20111010
  Serious: Yes (Death, Other)
  Sender: FDA-Public Use
  Company Number: GER/UKI/10/0015583

PATIENT
  Age: 41 Year
  Sex: Male

DRUGS (1)
  1. SERTRALINE HYDROCHLORIDE [Suspect]
     Indication: PRODUCT USED FOR UNKNOWN INDICATION

REACTIONS (9)
  - TOXICITY TO VARIOUS AGENTS [None]
  - PULMONARY CONGESTION [None]
  - ANTIPSYCHOTIC DRUG LEVEL INCREASED [None]
  - ABDOMINAL DISTENSION [None]
  - GASTROINTESTINAL HYPOMOTILITY [None]
  - MEGACOLON [None]
  - GASTRIC DILATATION [None]
  - FAECALOMA [None]
  - PULMONARY OEDEMA [None]
